FAERS Safety Report 7521020-4 (Version None)
Quarter: 2011Q2

REPORT INFORMATION
  Report Type: 
  Country: None (occurrence: None)
  Receive Date: 20110603
  Receipt Date: 20101202
  Transmission Date: 20111010
  Serious: Yes (Other)
  Sender: FDA-Public Use
  Company Number: NO-BAYER-2010-000320

PATIENT
  Age: 44 Year
  Sex: Female

DRUGS (2)
  1. MIRENA [Suspect]
     Dosage: UNK
     Dates: start: 20050101, end: 20101123
  2. MIRENA [Suspect]
     Dosage: UNK
     Dates: start: 20101123

REACTIONS (4)
  - DEVICE DIFFICULT TO USE [None]
  - GENITAL HAEMORRHAGE [None]
  - PROCEDURAL DIZZINESS [None]
  - SYNCOPE [None]
